FAERS Safety Report 24400299 (Version 2)
Quarter: 2024Q4

REPORT INFORMATION
  Report Type: Spontaneous
  Country: DE (occurrence: DE)
  Receive Date: 20241005
  Receipt Date: 20241025
  Transmission Date: 20250115
  Serious: Yes (Other)
  Sender: BAXTER
  Company Number: DE-DCGMA-24203902

PATIENT
  Age: 3 Year
  Sex: Female
  Weight: 14 kg

DRUGS (14)
  1. IFOSFAMIDE [Suspect]
     Active Substance: IFOSFAMIDE
     Indication: Pleuropulmonary blastoma
     Dosage: 2 G
     Route: 042
     Dates: start: 20240415, end: 20240416
  2. MESNA [Suspect]
     Active Substance: MESNA
     Indication: Urinary tract toxicity
     Dosage: 400 MG
     Route: 042
     Dates: start: 20240415, end: 20240416
  3. URSODIOL [Concomitant]
     Active Substance: URSODIOL
     Dosage: 200 MG, QD, (100MG-0-100MG), CUMULATIVE DOSE TO FIRST REACTION: 800 MG
     Route: 065
     Dates: start: 20240412, end: 20240424
  4. ALBUTEROL [Concomitant]
     Active Substance: ALBUTEROL
     Dosage: 3-3-3-3
     Route: 065
  5. LEVOMEPROMAZINE [Concomitant]
     Active Substance: LEVOMEPROMAZINE
     Dosage: 4 MG, QD, (2MG-0-2MG), CUMULATIVE DOSE TO FIRST REACTION: 12 MG
     Route: 065
     Dates: start: 20240413, end: 20240419
  6. FUROSEMIDE [Concomitant]
     Active Substance: FUROSEMIDE
     Dosage: 9 MG, QD
     Route: 065
     Dates: start: 20240415, end: 20240417
  7. METAMIZOLE [Concomitant]
     Active Substance: METAMIZOLE
     Dosage: 0.4 G, (0.2G-0-0.2G)
     Route: 065
  8. ONDANSETRON [Concomitant]
     Active Substance: ONDANSETRON
     Dosage: 4 MG, QD, (2MG-2MG-2MG)
     Route: 065
     Dates: start: 20240415, end: 20240418
  9. DEXAMETHASONE [Concomitant]
     Active Substance: DEXAMETHASONE
     Dosage: 3 MG, QD
     Route: 065
     Dates: start: 20240415, end: 20240416
  10. VINCRISTINE [Concomitant]
     Active Substance: VINCRISTINE
     Indication: Pleuropulmonary blastoma
     Dosage: 1MG ABOVE 15 MINUTE
     Route: 042
     Dates: start: 20240415, end: 20240415
  11. ACTINOMYCIN D [Concomitant]
     Active Substance: DACTINOMYCIN
     Indication: Pleuropulmonary blastoma
     Dosage: 1 MG
     Route: 042
     Dates: start: 20240415, end: 20240415
  12. CLONIDINE [Concomitant]
     Active Substance: CLONIDINE
     Dosage: 0.4 G, (0.2G-0-0.2G)
     Route: 065
  13. OMEPRAZOLE [Concomitant]
     Active Substance: OMEPRAZOLE
     Dosage: 10MG/25 ML
     Route: 065
  14. EMEND [Concomitant]
     Active Substance: APREPITANT
     Indication: Prophylaxis of nausea and vomiting
     Dosage: 40 MG
     Route: 042
     Dates: start: 20240415, end: 20240417

REACTIONS (5)
  - Base excess negative [Not Recovered/Not Resolved]
  - Renal tubular acidosis [Not Recovered/Not Resolved]
  - Fanconi syndrome [Not Recovered/Not Resolved]
  - Hypophosphataemia [Not Recovered/Not Resolved]
  - Hyponatraemia [Not Recovered/Not Resolved]

NARRATIVE: CASE EVENT DATE: 20240415
